FAERS Safety Report 25497679 (Version 1)
Quarter: 2025Q3

REPORT INFORMATION
  Report Type: Spontaneous
  Country: GB (occurrence: GB)
  Receive Date: 20250701
  Receipt Date: 20250701
  Transmission Date: 20251021
  Serious: Yes (Other)
  Sender: SAMSUNG BIOEPIS
  Company Number: None

PATIENT
  Age: 35 Year
  Sex: Female

DRUGS (1)
  1. ADALIMUMAB [Suspect]
     Active Substance: ADALIMUMAB
     Indication: Inflammatory bowel disease
     Dates: start: 20250429, end: 20250617

REACTIONS (3)
  - Swelling face [Recovering/Resolving]
  - Pharyngeal swelling [Unknown]
  - Off label use [Unknown]

NARRATIVE: CASE EVENT DATE: 20250525
